FAERS Safety Report 9214585 (Version 4)
Quarter: 2013Q4

REPORT INFORMATION
  Report Type: Spontaneous
  Country: GB (occurrence: GB)
  Receive Date: 20130405
  Receipt Date: 20131011
  Transmission Date: 20140711
  Serious: Yes (Hospitalization)
  Sender: FDA-Public Use
  Company Number: PHFR2013GB002041

PATIENT
  Age: 65 Year
  Sex: Female

DRUGS (8)
  1. CLOZARIL [Suspect]
     Indication: SCHIZOPHRENIA
     Dosage: UNK
     Route: 048
     Dates: start: 20120117, end: 20130328
  2. CLOZARIL [Suspect]
     Dosage: UNK
     Route: 048
  3. OMEPRAZOLE [Concomitant]
     Dosage: 20 MG, UNK
     Route: 048
  4. ASPIRIN [Concomitant]
     Dosage: 75 MG, UNK
     Route: 048
  5. SIMVASTATIN [Concomitant]
     Dosage: 40 MG, UNK
     Route: 048
  6. RANITIDINE [Concomitant]
     Dosage: 150 MG, UNK
     Route: 048
  7. LISINOPRIL [Concomitant]
     Dosage: 5 MG, UNK
     Route: 048
  8. MONTELUKAST [Concomitant]
     Dosage: 10 MG, UNK
     Route: 048

REACTIONS (5)
  - Asthma [Unknown]
  - White blood cell count decreased [Recovered/Resolved]
  - Neutropenia [Recovered/Resolved]
  - White blood cell count increased [Recovered/Resolved]
  - Neutrophil count increased [Recovered/Resolved]
